FAERS Safety Report 6690628-0 (Version None)
Quarter: 2010Q2

REPORT INFORMATION
  Report Type: 
  Country: None (occurrence: None)
  Receive Date: 20100421
  Receipt Date: 20100412
  Transmission Date: 20101027
  Serious: Yes (Hospitalization)
  Sender: FDA-Public Use
  Company Number: US-JNJFOC-20100403607

PATIENT
  Sex: Male
  Weight: 92.99 kg

DRUGS (12)
  1. DURAGESIC-100 [Suspect]
     Indication: INTERVERTEBRAL DISC DISORDER
     Route: 062
  2. DURAGESIC-100 [Suspect]
     Route: 062
  3. CYCLOSPORINE [Concomitant]
     Indication: RENAL TRANSPLANT
     Route: 048
  4. CELLCEPT [Concomitant]
     Indication: RENAL TRANSPLANT
     Route: 048
  5. PREDNISONE TAB [Concomitant]
     Indication: RENAL DISORDER
     Route: 048
  6. UROXATRAL [Concomitant]
     Indication: URINARY TRACT DISORDER
     Route: 048
  7. GABAPENTIN [Concomitant]
     Indication: NEUROPATHY PERIPHERAL
     Route: 048
  8. PEPCID [Concomitant]
     Indication: GASTRIC DISORDER
     Route: 048
  9. CENTRUM MULTIVITAMINS [Concomitant]
     Indication: VITAMIN SUPPLEMENTATION
     Route: 048
  10. MAGONATE [Concomitant]
     Indication: RENAL TRANSPLANT
     Route: 048
  11. PERCOCET [Concomitant]
     Indication: BACK PAIN
     Dosage: 7.5/ 325 MG
     Route: 048
  12. AMLODIPINE BESYLATE [Concomitant]
     Indication: HYPERTENSION
     Route: 048

REACTIONS (3)
  - BACK PAIN [None]
  - CORONARY ARTERY OCCLUSION [None]
  - DRUG INEFFECTIVE [None]
